FAERS Safety Report 4984686-9 (Version None)
Quarter: 2006Q2

REPORT INFORMATION
  Report Type: 
  Country: None (occurrence: None)
  Receive Date: 20060427
  Receipt Date: 20050509
  Transmission Date: 20061013
  Serious: Yes (Hospitalization, Disabling)
  Sender: FDA-Public Use
  Company Number: US-MERCK-0505USA01078

PATIENT
  Age: 49 Year
  Sex: Male
  Weight: 150 kg

DRUGS (1)
  1. VIOXX [Suspect]
     Indication: ARTHRALGIA
     Route: 048
     Dates: start: 19991123, end: 20030701

REACTIONS (24)
  - CARDIAC DISORDER [None]
  - CARDIAC FAILURE CONGESTIVE [None]
  - CARDIOVASCULAR DISORDER [None]
  - CHEST PAIN [None]
  - CLOSTRIDIUM COLITIS [None]
  - CONGESTIVE CARDIOMYOPATHY [None]
  - CORONARY ARTERY DISEASE [None]
  - CROHN'S DISEASE [None]
  - DEEP VEIN THROMBOSIS [None]
  - DEPRESSION [None]
  - DIABETES MELLITUS NON-INSULIN-DEPENDENT [None]
  - DYSPNOEA [None]
  - GASTROENTERITIS VIRAL [None]
  - GASTROOESOPHAGEAL REFLUX DISEASE [None]
  - HYPERCHOLESTEROLAEMIA [None]
  - PALPITATIONS [None]
  - PANCREATITIS [None]
  - PITTING OEDEMA [None]
  - PULMONARY EMBOLISM [None]
  - PULMONARY HYPERTENSION [None]
  - PYREXIA [None]
  - SLEEP APNOEA SYNDROME [None]
  - SMALL INTESTINAL OBSTRUCTION [None]
  - WEIGHT INCREASED [None]
